FAERS Safety Report 5815348-3 (Version None)
Quarter: 2008Q3

REPORT INFORMATION
  Report Type: 
  Country: None (occurrence: None)
  Receive Date: 20080718
  Receipt Date: 20080709
  Transmission Date: 20090109
  Serious: Yes (Death)
  Sender: FDA-Public Use
  Company Number: JP-PFIZER INC-2008034163

PATIENT
  Sex: Female
  Weight: 35 kg

DRUGS (6)
  1. ZYVOX [Suspect]
     Indication: ENTEROCOCCAL INFECTION
     Route: 042
     Dates: start: 20080410, end: 20080414
  2. CEFOPERAZONE W/SULBACTAM [Concomitant]
     Indication: URINARY TRACT INFECTION
     Route: 042
     Dates: start: 20080226, end: 20080410
  3. FUROSEMIDE [Concomitant]
     Indication: CARDIAC FAILURE
     Route: 042
  4. SACCHARATED IRON OXIDE [Concomitant]
     Indication: ANAEMIA
     Route: 042
  5. RED BLOOD CELLS [Concomitant]
     Indication: ANAEMIA
     Route: 042
     Dates: start: 20080401, end: 20080402
  6. BUMINATE [Concomitant]
     Indication: HYPOALBUMINAEMIA
     Route: 042
     Dates: start: 20080408, end: 20080410

REACTIONS (1)
  - GENERAL PHYSICAL HEALTH DETERIORATION [None]
